FAERS Safety Report 21362626 (Version 2)
Quarter: 2022Q3

REPORT INFORMATION
  Report Type: Spontaneous
  Country: FR (occurrence: FR)
  Receive Date: 20220922
  Receipt Date: 20220929
  Transmission Date: 20221026
  Serious: Yes (Hospitalization)
  Sender: FDA-Public Use
  Company Number: FR-ABBVIE-4128322

PATIENT
  Age: 74 Year
  Sex: Female

DRUGS (1)
  1. VENETOCLAX [Suspect]
     Active Substance: VENETOCLAX
     Indication: Breast cancer
     Route: 048

REACTIONS (2)
  - Hyponatraemia [Unknown]
  - Off label use [Unknown]
